FAERS Safety Report 6278289-6 (Version None)
Quarter: 2009Q3

REPORT INFORMATION
  Report Type: 
  Country: None (occurrence: None)
  Receive Date: 20090722
  Receipt Date: 20090708
  Transmission Date: 20100115
  Serious: Yes (Hospitalization)
  Sender: FDA-Public Use
  Company Number: NL-MEDIMMUNE-MEDI-0008677

PATIENT
  Sex: Female

DRUGS (7)
  1. SYNAGIS [Suspect]
     Route: 030
     Dates: start: 20081005
  2. SYNAGIS [Suspect]
  3. SYNAGIS [Suspect]
  4. SYNAGIS [Suspect]
  5. SYNAGIS [Suspect]
  6. SYNAGIS [Suspect]
  7. SYNAGIS [Suspect]

REACTIONS (2)
  - HOSPITALISATION [None]
  - RESPIRATORY SYNCYTIAL VIRUS INFECTION [None]
